FAERS Safety Report 9887440 (Version 1)
Quarter: 2014Q1

REPORT INFORMATION
  Report Type: Spontaneous
  Country: US (occurrence: None)
  Receive Date: 20140207
  Receipt Date: 20140207
  Transmission Date: 20141002
  Serious: Yes (Hospitalization)
  Sender: FDA-Public Use
  Company Number: None

PATIENT
  Age: 79 Year
  Sex: Male
  Weight: 67 kg

DRUGS (1)
  1. WARFARIN [Suspect]
     Indication: PULMONARY EMBOLISM
     Route: 048
     Dates: start: 20100517

REACTIONS (7)
  - International normalised ratio increased [None]
  - Diverticulum intestinal [None]
  - Large intestine polyp [None]
  - Gastrointestinal arteriovenous malformation [None]
  - Anaemia [None]
  - Ventricular tachycardia [None]
  - Gastrointestinal haemorrhage [None]
